FAERS Safety Report 10797758 (Version 1)
Quarter: 2015Q1

REPORT INFORMATION
  Report Type: Spontaneous
  Country: US (occurrence: US)
  Receive Date: 20150216
  Receipt Date: 20150216
  Transmission Date: 20150721
  Serious: No
  Sender: FDA-Public Use
  Company Number: US-PFIZER INC-2014214208

PATIENT
  Age: 54 Year
  Sex: Male

DRUGS (5)
  1. DILTIAZEM HYDROCHLORIDE EXTENDED RELEASE [Concomitant]
     Active Substance: DILTIAZEM HYDROCHLORIDE
     Dosage: 180 MG, UNK
     Dates: start: 201406
  2. TIKOSYN [Suspect]
     Active Substance: DOFETILIDE
     Dosage: 1125 ?G, UNK
     Dates: start: 201408
  3. TIKOSYN [Suspect]
     Active Substance: DOFETILIDE
     Indication: ATRIAL FIBRILLATION
     Dosage: 1000 UG, DAILY
     Dates: start: 201206
  4. XARELTO [Concomitant]
     Active Substance: RIVAROXABAN
     Dosage: 20 MG, UNK
     Dates: start: 201403
  5. ASA [Concomitant]
     Active Substance: ASPIRIN
     Dosage: 81 MG, UNK
     Dates: start: 201406

REACTIONS (2)
  - Drug ineffective [Not Recovered/Not Resolved]
  - Drug prescribing error [Not Recovered/Not Resolved]

NARRATIVE: CASE EVENT DATE: 201408
